FAERS Safety Report 7652994-9 (Version None)
Quarter: 2011Q3

REPORT INFORMATION
  Report Type: 
  Country: None (occurrence: None)
  Receive Date: 20110803
  Receipt Date: 20110704
  Transmission Date: 20111222
  Serious: Yes (Death)
  Sender: FDA-Public Use
  Company Number: FR-ROCHE-787802

PATIENT

DRUGS (1)
  1. PEGINTERFERON ALFA-2A [Suspect]
     Route: 065

REACTIONS (1)
  - SUDDEN DEATH [None]
